FAERS Safety Report 13657242 (Version 1)
Quarter: 2017Q2

REPORT INFORMATION
  Report Type: Spontaneous
  Country: US (occurrence: US)
  Receive Date: 20170615
  Receipt Date: 20170615
  Transmission Date: 20170830
  Serious: Yes (Hospitalization)
  Sender: FDA-Public Use
  Company Number: US-LUNDBECK-DKLU2032633

PATIENT
  Sex: Male

DRUGS (1)
  1. NORTHERA [Suspect]
     Active Substance: DROXIDOPA
     Indication: PARKINSON^S DISEASE
     Dosage: SCHEDULE B
     Route: 048

REACTIONS (6)
  - Asthenia [Unknown]
  - Blood pressure fluctuation [Unknown]
  - Fall [Unknown]
  - Supine hypertension [Unknown]
  - Urinary tract infection [Unknown]
  - Head injury [Unknown]
